FAERS Safety Report 8809296 (Version 1)
Quarter: 2012Q4

REPORT INFORMATION
  Report Type: Spontaneous
  Country: US (occurrence: None)
  Receive Date: 20120924
  Receipt Date: 20120924
  Transmission Date: 20130627
  Serious: Yes (Other)
  Sender: FDA-Public Use
  Company Number: None

PATIENT
  Age: 53 Year
  Sex: Female
  Weight: 68.04 kg

DRUGS (2)
  1. NITROFURANTOIN [Suspect]
     Indication: URINARY TRACT INFECTION
     Route: 048
     Dates: start: 20120610, end: 20120610
  2. NITROFURANTOIN [Suspect]
     Indication: URINARY TRACT INFECTION
     Dates: start: 20120920, end: 20120920

REACTIONS (9)
  - Chills [None]
  - Muscle contractions involuntary [None]
  - Pain [None]
  - Pyrexia [None]
  - Headache [None]
  - Nausea [None]
  - Vomiting [None]
  - Malaise [None]
  - Impaired work ability [None]
